FAERS Safety Report 5224929-X (Version None)
Quarter: 2007Q1

REPORT INFORMATION
  Report Type: 
  Country: None (occurrence: None)
  Receive Date: 20070131
  Receipt Date: 20070123
  Transmission Date: 20070707
  Serious: Yes (Other)
  Sender: FDA-Public Use
  Company Number: PHBS2007JP01609

PATIENT
  Age: 7 Year
  Sex: Female

DRUGS (1)
  1. SANDIMMUNE [Suspect]
     Indication: MYELODYSPLASTIC SYNDROME
     Route: 042

REACTIONS (2)
  - CONVULSION [None]
  - HYPERMAGNESAEMIA [None]
